FAERS Safety Report 18875269 (Version 3)
Quarter: 2021Q1

REPORT INFORMATION
  Report Type: Other
  Country: US (occurrence: US)
  Receive Date: 20210210
  Receipt Date: 20210308
  Transmission Date: 20210420
  Serious: No
  Sender: FDA-Public Use
  Company Number: US-ROCHE-2766147

PATIENT
  Age: 39 Year
  Sex: Female
  Weight: 71.9 kg

DRUGS (5)
  1. OCREVUS [Suspect]
     Active Substance: OCRELIZUMAB
     Indication: MULTIPLE SCLEROSIS
     Dosage: VIAL?INFUSE 600MG EVERY 6 MONTHS; ONGOING: YES
     Route: 042
  2. OCREVUS [Suspect]
     Active Substance: OCRELIZUMAB
     Indication: RELAPSING-REMITTING MULTIPLE SCLEROSIS
     Dosage: INFUSE 300 MG ON DAY 1 AND DAY 15?VIAL
     Route: 042
     Dates: start: 20180406
  3. AYGESTIN [Concomitant]
     Active Substance: NORETHINDRONE ACETATE
     Route: 048
  4. LEXAPRO [Concomitant]
     Active Substance: ESCITALOPRAM OXALATE
     Route: 048
  5. CLONAZEPAM. [Concomitant]
     Active Substance: CLONAZEPAM
     Indication: TREMOR
     Route: 048
     Dates: start: 2013

REACTIONS (2)
  - Fatigue [Not Recovered/Not Resolved]
  - COVID-19 [Recovered/Resolved]

NARRATIVE: CASE EVENT DATE: 202101
